FAERS Safety Report 9729821 (Version 2)
Quarter: 2013Q4

REPORT INFORMATION
  Report Type: Spontaneous
  Country: US (occurrence: US)
  Receive Date: 20131204
  Receipt Date: 20131204
  Transmission Date: 20140711
  Serious: No
  Sender: FDA-Public Use
  Company Number: US-GILEAD-2009-0022409

PATIENT
  Age: 57 Year
  Sex: Female
  Weight: 66.68 kg

DRUGS (10)
  1. LETAIRIS [Suspect]
     Indication: PULMONARY ARTERIAL HYPERTENSION
     Route: 048
     Dates: start: 20090603, end: 20090714
  2. FUROSEMIDE [Concomitant]
  3. SIMVASTATIN [Concomitant]
  4. ADVAIR [Concomitant]
  5. RA NATURAL CO-Q10 [Concomitant]
  6. FLEXERIL [Concomitant]
  7. VICODIN [Concomitant]
  8. CALTRATE 600 + D [Concomitant]
  9. POTASSIUM CHLORIDE [Concomitant]
  10. ASPIRIN [Concomitant]

REACTIONS (4)
  - Unevaluable event [Recovered/Resolved]
  - Swelling [Recovered/Resolved]
  - Eye swelling [Recovered/Resolved]
  - Hypersensitivity [Recovered/Resolved]
